FAERS Safety Report 4932398-X (Version None)
Quarter: 2006Q1

REPORT INFORMATION
  Report Type: 
  Country: None (occurrence: None)
  Receive Date: 20060228
  Receipt Date: 20060216
  Transmission Date: 20060701
  Serious: Yes (Hospitalization)
  Sender: FDA-Public Use
  Company Number: 200610177BFR

PATIENT
  Age: 77 Year
  Sex: Female
  Weight: 72 kg

DRUGS (9)
  1. CIFLOX (CIPROFLOXACIN) [Suspect]
     Indication: URINARY TRACT INFECTION
     Dosage: 500 MG, BID, ORAL
     Route: 048
     Dates: start: 20060124, end: 20060125
  2. BACTRIM [Suspect]
     Indication: URINARY TRACT INFECTION
     Dosage: QD, ORAL
     Route: 048
     Dates: end: 20060124
  3. MOGADON [Concomitant]
  4. CORVASAL [Concomitant]
  5. TRIATEC [Concomitant]
  6. FRACTAL [Concomitant]
  7. INSULIN MIXTARD [Concomitant]
  8. NEURONTIN [Concomitant]
  9. LAMALINE [Concomitant]

REACTIONS (6)
  - AMNESIA [None]
  - FALL [None]
  - HYPERKALAEMIA [None]
  - RENAL FAILURE [None]
  - RHABDOMYOLYSIS [None]
  - STEVENS-JOHNSON SYNDROME [None]
